FAERS Safety Report 4895649-6 (Version None)
Quarter: 2006Q1

REPORT INFORMATION
  Report Type: 
  Country: None (occurrence: None)
  Receive Date: 20060125
  Receipt Date: 20060113
  Transmission Date: 20060701
  Serious: Yes (Hospitalization)
  Sender: FDA-Public Use
  Company Number: KII-2006-0020723

PATIENT
  Age: 92 Year
  Sex: Male

DRUGS (3)
  1. MORPHINE SULFATE [Suspect]
     Dosage: SEE TEXT, ORAL
     Route: 048
     Dates: start: 20051221, end: 20051221
  2. ACETAMINOPHEN AND HYDROCODONE BITARTRATE [Suspect]
     Indication: ACCIDENTAL EXPOSURE
     Dosage: SINGLE, ORAL
     Route: 048
     Dates: start: 20051221, end: 20051221
  3. THIAZIDE DERIVATIVES [Concomitant]

REACTIONS (2)
  - ACCIDENTAL EXPOSURE [None]
  - SOMNOLENCE [None]
